FAERS Safety Report 4357401-X (Version None)
Quarter: 2004Q2

REPORT INFORMATION
  Report Type: 
  Country: None (occurrence: None)
  Receive Date: 20040510
  Receipt Date: 20040426
  Transmission Date: 20050107
  Serious: Yes (Hospitalization)
  Sender: FDA-Public Use
  Company Number: 2004CG00847

PATIENT
  Age: 52 Year
  Sex: Male

DRUGS (4)
  1. NEXIUM [Suspect]
     Indication: PROPHYLAXIS
     Dosage: 20 MG QD PO
     Route: 048
     Dates: start: 20030101, end: 20040401
  2. PLAVIX [Suspect]
     Indication: ARTERIOPATHIC DISEASE
     Dates: start: 20030101
  3. DEROXAT [Concomitant]
  4. PRAXILENE [Concomitant]

REACTIONS (2)
  - DRUG INEFFECTIVE [None]
  - GASTROINTESTINAL ULCER PERFORATION [None]
